FAERS Safety Report 5138701-2 (Version None)
Quarter: 2006Q4

REPORT INFORMATION
  Report Type: 
  Country: None (occurrence: None)
  Receive Date: 20061030
  Receipt Date: 20061009
  Transmission Date: 20070319
  Serious: Yes (Hospitalization)
  Sender: FDA-Public Use
  Company Number: US-ROCHE-466812

PATIENT
  Age: 70 Year
  Sex: Male
  Weight: 56 kg

DRUGS (3)
  1. XELODA [Suspect]
     Route: 048
     Dates: start: 20060824, end: 20060928
  2. AVASTIN [Concomitant]
     Dates: start: 20060824
  3. OXALIPLATIN [Concomitant]
     Dates: start: 20060728

REACTIONS (5)
  - BLOOD BILIRUBIN UNCONJUGATED INCREASED [None]
  - DEHYDRATION [None]
  - DIARRHOEA [None]
  - VOMITING [None]
  - WEIGHT DECREASED [None]
